FAERS Safety Report 4950170-1 (Version None)
Quarter: 2006Q1

REPORT INFORMATION
  Report Type: 
  Country: None (occurrence: None)
  Receive Date: 20060316
  Receipt Date: 20060306
  Transmission Date: 20060701
  Serious: Yes (Other)
  Sender: FDA-Public Use
  Company Number: 2006023346

PATIENT
  Age: 41 Year
  Sex: Female
  Weight: 63.6 kg

DRUGS (4)
  1. AMLODIPINE [Suspect]
     Indication: HYPERTENSION
     Dosage: 5 MG (5 MG DAILY INTERVAL: EVERY DAY) ORAL
     Route: 048
     Dates: start: 20050315
  2. PERINDOPRIL (PERINDOPRIL) [Suspect]
     Indication: HYPERTENSION
     Dosage: 2 MG (2 MG DAILY INTERVAL; EVERY DAY) ORAL
     Route: 048
     Dates: start: 20050414, end: 20050901
  3. PREDNISOLONE [Concomitant]
  4. IMMUNOGLOBULINS [Concomitant]

REACTIONS (1)
  - APLASIA PURE RED CELL [None]
